FAERS Safety Report 8510061-6 (Version None)
Quarter: 2012Q3

REPORT INFORMATION
  Report Type: 
  Country: None (occurrence: None)
  Receive Date: 20120713
  Receipt Date: 20120629
  Transmission Date: 20120928
  Serious: Yes (Other)
  Sender: FDA-Public Use
  Company Number: GB-WATSON-2012-11654

PATIENT
  Age: 48 Year
  Sex: Female

DRUGS (2)
  1. LOPERAMIDE [Concomitant]
     Indication: CROHN'S DISEASE
     Dosage: 2 MG, UNKNOWN
     Route: 048
  2. GABAPENTIN [Suspect]
     Indication: PRODUCT USED FOR UNKNOWN INDICATION
     Dosage: 100 MG, UNKNOWN
     Route: 048

REACTIONS (2)
  - MELAENA [None]
  - GASTROINTESTINAL HAEMORRHAGE [None]
